FAERS Safety Report 5087346-1 (Version None)
Quarter: 2006Q3

REPORT INFORMATION
  Report Type: 
  Country: None (occurrence: None)
  Receive Date: 20060823
  Receipt Date: 20060823
  Transmission Date: 20061208
  Serious: Yes (Hospitalization)
  Sender: FDA-Public Use
  Company Number: None

PATIENT
  Age: 54 Year
  Sex: Female
  Weight: 74.67 kg

DRUGS (3)
  1. ERBITUX [Suspect]
     Indication: PANCREATIC CARCINOMA
     Dosage: 400MG/M2X1,  250MG/M2    WEEKLY    IV DRIP
     Route: 041
     Dates: start: 20060707, end: 20060818
  2. GEMCITABINE [Suspect]
     Dosage: 50MG/M2   BI-WEEKLY   IV DRIP
     Route: 041
     Dates: start: 20060711, end: 20060818
  3. RADIATION [Concomitant]

REACTIONS (2)
  - NAUSEA [None]
  - VOMITING [None]
